FAERS Safety Report 18097796 (Version 2)
Quarter: 2020Q3

REPORT INFORMATION
  Report Type: Spontaneous
  Country: IT (occurrence: IT)
  Receive Date: 20200730
  Receipt Date: 20200926
  Transmission Date: 20201103
  Serious: Yes (Hospitalization)
  Sender: FDA-Public Use
  Company Number: IT-009507513-2007ITA009128

PATIENT
  Age: 13 Year
  Sex: Male

DRUGS (1)
  1. POSACONAZOLE [Suspect]
     Active Substance: POSACONAZOLE
     Indication: BRONCHOPULMONARY ASPERGILLOSIS
     Dosage: UNK
     Route: 048
     Dates: start: 20200701, end: 20200711

REACTIONS (1)
  - Rash morbilliform [Recovered/Resolved]

NARRATIVE: CASE EVENT DATE: 20200711
